FAERS Safety Report 16051347 (Version 2)
Quarter: 2024Q1

REPORT INFORMATION
  Report Type: Spontaneous
  Country: PL (occurrence: PL)
  Receive Date: 20190308
  Receipt Date: 20240216
  Transmission Date: 20240410
  Serious: Yes (Hospitalization)
  Sender: FDA-Public Use
  Company Number: PL-EMA-DD-20190219-AGRAHARI_P-143549

PATIENT
  Age: 27 Year
  Sex: Male
  Weight: 76 kg

DRUGS (14)
  1. VALGANCICLOVIR [Suspect]
     Active Substance: VALGANCICLOVIR
     Indication: Epstein-Barr virus infection reactivation
     Route: 065
     Dates: start: 20181204
  2. ACYCLOVIR [Concomitant]
     Active Substance: ACYCLOVIR
     Indication: Antiviral prophylaxis
     Route: 065
     Dates: start: 20181127
  3. METHYLPREDNISOLONE [Suspect]
     Active Substance: METHYLPREDNISOLONE
     Dosage: DOSAGE TEXT: EVERYDAY QOD (EVERY OTHER DAY)
     Route: 065
     Dates: start: 20181227, end: 20190102
  4. GANCICLOVIR [Suspect]
     Active Substance: GANCICLOVIR
     Indication: Cytomegalovirus infection
     Route: 065
     Dates: start: 20181126, end: 20181230
  5. GANCICLOVIR [Suspect]
     Active Substance: GANCICLOVIR
     Indication: Cytomegalovirus infection
     Route: 042
     Dates: start: 20181211, end: 20181231
  6. VORICONAZOLE [Concomitant]
     Active Substance: VORICONAZOLE
     Indication: Antifungal prophylaxis
     Route: 065
     Dates: start: 20181127
  7. CIDOFOVIR [Concomitant]
     Active Substance: CIDOFOVIR
     Dosage: DOSAGE TEXT: 5 MG/KG (TOTAL DOSE 375 MG)
     Route: 042
     Dates: start: 20190115
  8. SULFAMETHOXAZOLE\TRIMETHOPRIM [Concomitant]
     Active Substance: SULFAMETHOXAZOLE\TRIMETHOPRIM
     Indication: Antibiotic prophylaxis
     Dosage: 960 MILLIGRAM, QOD
     Dates: start: 20181129
  9. FOSCAVIR [Suspect]
     Active Substance: FOSCARNET SODIUM
     Indication: Cytomegalovirus infection
     Route: 042
     Dates: start: 20181231
  10. SIROLIMUS [Suspect]
     Active Substance: SIROLIMUS
     Indication: Immunosuppressant drug therapy
     Route: 065
     Dates: start: 20181113
  11. METHYLPREDNISOLONE [Suspect]
     Active Substance: METHYLPREDNISOLONE
     Indication: Acute graft versus host disease
     Dosage: DOSAGE TEXT: EVERYDAY ON 2/DEC/2018 LAST DOSE RECEIVED PRIOR TO SAE ONSET
     Route: 042
     Dates: start: 20181124, end: 20181226
  12. METHYLPREDNISOLONE [Suspect]
     Active Substance: METHYLPREDNISOLONE
     Indication: Acute graft versus host disease
     Dosage: EVERYDAY QOD (EVERY OTHER DAY)
     Route: 065
     Dates: start: 20181227, end: 20190102
  13. ITACITINIB [Suspect]
     Active Substance: ITACITINIB
     Indication: Acute graft versus host disease in skin
     Dosage: DOSAGE TEXT: EVERY DAY?ON 2/DEC/2018 LAST DOSE RECEIVED PRIOR TO SAE ONSET
     Route: 065
     Dates: start: 20181126, end: 20181230
  14. ITACITINIB [Suspect]
     Active Substance: ITACITINIB
     Indication: Acute graft versus host disease in skin
     Dosage: DOSAGE TEXT: EVERYDAY
     Route: 065
     Dates: start: 20181231

REACTIONS (5)
  - Drug resistance [Unknown]
  - Pancytopenia [Recovering/Resolving]
  - Epstein-Barr virus infection reactivation [Recovered/Resolved]
  - Cytomegalovirus viraemia [Recovered/Resolved with Sequelae]
  - Pancytopenia [Recovered/Resolved]

NARRATIVE: CASE EVENT DATE: 20181203
